FAERS Safety Report 12282505 (Version 1)
Quarter: 2016Q2

REPORT INFORMATION
  Report Type: Spontaneous
  Country: US (occurrence: US)
  Receive Date: 20160419
  Receipt Date: 20160419
  Transmission Date: 20160815
  Serious: No
  Sender: FDA-Public Use
  Company Number: PHEH2016US009445

PATIENT
  Age: 55 Year

DRUGS (1)
  1. ZYKADIA [Suspect]
     Active Substance: CERITINIB
     Indication: NON-SMALL CELL LUNG CANCER
     Route: 048

REACTIONS (9)
  - Faeces discoloured [Unknown]
  - Nausea [Not Recovered/Not Resolved]
  - Thirst [Not Recovered/Not Resolved]
  - Vomiting [Not Recovered/Not Resolved]
  - Chromaturia [Unknown]
  - Dry skin [Unknown]
  - Weight decreased [Recovering/Resolving]
  - Peripheral swelling [Recovered/Resolved]
  - Dry mouth [Not Recovered/Not Resolved]
